FAERS Safety Report 5825937-8 (Version None)
Quarter: 2008Q3

REPORT INFORMATION
  Report Type: 
  Country: None (occurrence: None)
  Receive Date: 20080729
  Receipt Date: 20080721
  Transmission Date: 20090109
  Serious: Yes (Hospitalization)
  Sender: FDA-Public Use
  Company Number: PHHY2008IT14522

PATIENT
  Sex: Female

DRUGS (1)
  1. VOLTADVANCE [Suspect]
     Indication: HEADACHE
     Dosage: POSOLOGIC UNIT PER DAY
     Dates: start: 20080614, end: 20080620

REACTIONS (3)
  - ABDOMINAL PAIN UPPER [None]
  - ANAEMIA [None]
  - GASTRIC ULCER [None]
